FAERS Safety Report 25511797 (Version 1)
Quarter: 2025Q3

REPORT INFORMATION
  Report Type: Spontaneous
  Country: US (occurrence: US)
  Receive Date: 20250703
  Receipt Date: 20250703
  Transmission Date: 20251020
  Serious: No
  Sender: RADIUS PHARM
  Company Number: US-RADIUS HEALTH INC.-2024US006749

PATIENT
  Sex: Female

DRUGS (2)
  1. TYMLOS [Suspect]
     Active Substance: ABALOPARATIDE
     Indication: Osteoporosis
     Dosage: 80 MICROGRAM, QD
     Route: 058
     Dates: start: 20240502, end: 202503
  2. STRENSIQ [Concomitant]
     Active Substance: ASFOTASE ALFA
     Indication: Product used for unknown indication

REACTIONS (9)
  - Heart rate increased [Unknown]
  - Palpitations [Unknown]
  - Drug hypersensitivity [Unknown]
  - Swelling [Recovered/Resolved]
  - Stress [Unknown]
  - Heart rate increased [Unknown]
  - Dehydration [Unknown]
  - Headache [Unknown]
  - Dizziness [Unknown]
